FAERS Safety Report 12256952 (Version 3)
Quarter: 2020Q3

REPORT INFORMATION
  Report Type: Report from Study
  Country: UA (occurrence: UA)
  Receive Date: 20160412
  Receipt Date: 20160429
  Transmission Date: 20201104
  Serious: Yes (Life-Threatening, Hospitalization, Disabling)
  Sender: FDA-Public Use
  Company Number: UA-JNJFOC-20160407596

PATIENT
  Age: 62 Year
  Sex: Female
  Weight: 52 kg

DRUGS (14)
  1. MELPHALAN. [Suspect]
     Active Substance: MELPHALAN
     Indication: PLASMA CELL MYELOMA
     Dosage: C1 P1
     Route: 048
     Dates: start: 20160315
  2. OMEPRAZOLUM [Concomitant]
     Indication: PROPHYLAXIS
     Route: 048
     Dates: start: 20160212
  3. CALCIUM D3 NYCOMED [Concomitant]
     Indication: OSTEOCHONDROSIS
     Route: 048
     Dates: start: 20160223
  4. LISINOPRIL. [Concomitant]
     Active Substance: LISINOPRIL
     Indication: HYPERTENSION
     Route: 048
     Dates: start: 20160210
  5. ATORVASTATIN [Concomitant]
     Active Substance: ATORVASTATIN
     Indication: PROPHYLAXIS
     Route: 048
     Dates: start: 20160216
  6. ACICLOVIRUM [Concomitant]
     Indication: ANTIVIRAL PROPHYLAXIS
     Route: 048
     Dates: start: 20160212
  7. REOSORBILACT [Concomitant]
     Indication: CARDIOVASCULAR DISORDER
     Route: 042
     Dates: start: 20160212
  8. BISOPROLOL [Concomitant]
     Active Substance: BISOPROLOL
     Indication: HYPERTENSION
     Route: 048
     Dates: start: 20160216
  9. ASPARCAM [Concomitant]
     Indication: HYPOKALAEMIA
     Route: 048
     Dates: start: 20160212
  10. DARATUMUMAB [Suspect]
     Active Substance: DARATUMUMAB
     Indication: PLASMA CELL MYELOMA
     Dosage: MED. KIT NO. 4370395. C1 D1, 8, 15, 22
     Route: 042
     Dates: start: 20160315
  11. PREDNISONE. [Suspect]
     Active Substance: PREDNISONE
     Indication: PLASMA CELL MYELOMA
     Dosage: C1 P1
     Route: 048
     Dates: start: 20160316
  12. DARATUMUMAB [Suspect]
     Active Substance: DARATUMUMAB
     Route: 042
  13. VELCADE [Suspect]
     Active Substance: BORTEZOMIB
     Indication: PLASMA CELL MYELOMA
     Dosage: C1 D1, 4, 8, 11, 25
     Route: 058
     Dates: start: 20160315
  14. ACETYLSALICYLIC ACID [Concomitant]
     Active Substance: ASPIRIN
     Indication: THROMBOSIS PROPHYLAXIS
     Route: 048
     Dates: start: 20160315

REACTIONS (1)
  - Pulmonary oedema [Recovered/Resolved with Sequelae]

NARRATIVE: CASE EVENT DATE: 20160406
